FAERS Safety Report 13508010 (Version 4)
Quarter: 2017Q4

REPORT INFORMATION
  Report Type: Report from Study
  Country: CN (occurrence: CN)
  Receive Date: 20170503
  Receipt Date: 20171102
  Transmission Date: 20180320
  Serious: Yes (Death, Hospitalization)
  Sender: FDA-Public Use
  Company Number: CN-ROCHE-1922350

PATIENT
  Age: 71 Year
  Sex: Male
  Weight: 61 kg

DRUGS (12)
  1. METOCLOPRAMIDE. [Concomitant]
     Active Substance: METOCLOPRAMIDE
     Indication: DECREASED APPETITE
     Route: 048
     Dates: start: 20161018
  2. CODEINE [Concomitant]
     Active Substance: CODEINE
     Indication: COUGH
     Route: 048
     Dates: start: 20161011
  3. TAMSULOSIN HYDROCHLORIDE. [Concomitant]
     Active Substance: TAMSULOSIN HYDROCHLORIDE
     Indication: BENIGN PROSTATIC HYPERPLASIA
     Route: 065
     Dates: start: 20161215
  4. MORPHINE HYDROCHLORIDE [Concomitant]
     Active Substance: MORPHINE HYDROCHLORIDE
     Indication: PAIN
     Route: 065
     Dates: start: 20161011
  5. METOCLOPRAMIDE DIHYDROCHLORIDE [Concomitant]
     Indication: DECREASED APPETITE
     Route: 065
     Dates: start: 20161018
  6. TAMSULOSIN [Concomitant]
     Active Substance: TAMSULOSIN
     Indication: BENIGN PROSTATIC HYPERPLASIA
     Route: 065
     Dates: start: 20170329
  7. ATEZOLIZUMAB. [Suspect]
     Active Substance: ATEZOLIZUMAB
     Indication: NON-SMALL CELL LUNG CANCER
     Dosage: THE DATE OF THE MOST RECENT DOSE OF ATEZOLIZUAMB 1200 MG PRIOR TO SAE ONSET WAS ADMINISTERED ON 29/M
     Route: 042
     Dates: start: 20161103, end: 20170609
  8. DIAMMONIUM GLYCYRRHIZINATE [Concomitant]
     Active Substance: HERBALS
     Route: 065
     Dates: start: 20161215
  9. IMRECOXIB [Concomitant]
     Indication: PAIN
     Route: 065
     Dates: start: 20160120
  10. CODEINE [Concomitant]
     Active Substance: CODEINE
     Route: 048
     Dates: start: 20161014
  11. MEDROXYPROGESTERONE ACETATE. [Concomitant]
     Active Substance: MEDROXYPROGESTERONE ACETATE
     Route: 048
     Dates: start: 20161018
  12. FINASTERIDE. [Concomitant]
     Active Substance: FINASTERIDE
     Indication: BENIGN PROSTATIC HYPERPLASIA
     Route: 065
     Dates: start: 20170214

REACTIONS (1)
  - Pneumothorax [Not Recovered/Not Resolved]

NARRATIVE: CASE EVENT DATE: 20170413
